FAERS Safety Report 16627397 (Version 1)
Quarter: 2019Q3

REPORT INFORMATION
  Report Type: Spontaneous
  Country: US (occurrence: US)
  Receive Date: 20190724
  Receipt Date: 20190724
  Transmission Date: 20191004
  Serious: Yes (Other)
  Sender: FDA-Public Use
  Company Number: US-JNJFOC-20190719658

PATIENT
  Sex: Female

DRUGS (2)
  1. XOLAIR [Concomitant]
     Active Substance: OMALIZUMAB
  2. STELARA [Suspect]
     Active Substance: USTEKINUMAB
     Indication: CROHN^S DISEASE
     Route: 058
     Dates: start: 20181127

REACTIONS (2)
  - Cardiac failure congestive [Unknown]
  - Crohn^s disease [Unknown]
